FAERS Safety Report 24318603 (Version 1)
Quarter: 2024Q3

REPORT INFORMATION
  Report Type: Spontaneous
  Country: US (occurrence: None)
  Receive Date: 20240913
  Receipt Date: 20240913
  Transmission Date: 20241016
  Serious: Yes (Other)
  Sender: Public
  Company Number: None

PATIENT
  Age: 50 Year
  Sex: Female
  Weight: 68 kg

DRUGS (3)
  1. OCTAGAM IMMUNE GLOBULIN (HUMAN) [Suspect]
     Active Substance: HUMAN IMMUNOGLOBULIN G
     Dosage: 70 G GRAM (S) EVERY 4 WEEKS INTRAVENOUS
     Route: 042
     Dates: start: 20210929
  2. COMPAZINE [Suspect]
     Active Substance: PROCHLORPERAZINE MALEATE
  3. COMPAZINE [Suspect]
     Active Substance: PROCHLORPERAZINE MALEATE

REACTIONS (2)
  - Urinary tract infection [None]
  - Mental status changes [None]

NARRATIVE: CASE EVENT DATE: 20240307
